FAERS Safety Report 6244943-5 (Version None)
Quarter: 2009Q2

REPORT INFORMATION
  Report Type: 
  Country: None (occurrence: None)
  Receive Date: 20090625
  Receipt Date: 20090617
  Transmission Date: 20091009
  Serious: Yes (Other)
  Sender: FDA-Public Use
  Company Number: PHHY2009JP24096

PATIENT

DRUGS (1)
  1. PARLODEL [Suspect]

REACTIONS (1)
  - INTERSTITIAL LUNG DISEASE [None]
